FAERS Safety Report 4462723-8 (Version None)
Quarter: 2004Q3

REPORT INFORMATION
  Report Type: 
  Country: None (occurrence: None)
  Receive Date: 20040927
  Receipt Date: 20040831
  Transmission Date: 20050211
  Serious: Yes (Other)
  Sender: FDA-Public Use
  Company Number: US_000540612

PATIENT
  Age: 40 Year
  Sex: Female
  Weight: 56 kg

DRUGS (4)
  1. REGULAR ILETIN II (PORK) [Suspect]
     Indication: DIABETES MELLITUS
     Dates: start: 20000401
  2. HUMALOG [Suspect]
     Indication: DIABETES MELLITUS
     Dates: end: 20000101
  3. HUMULIN L [Suspect]
     Indication: DIABETES MELLITUS
     Dosage: 34 U DAY
     Dates: end: 20000101
  4. LENTE ILETIN II (PORK) [Suspect]
     Indication: DIABETES MELLITUS
     Dosage: 38 U DAY
     Dates: start: 20000401

REACTIONS (15)
  - ANOREXIA [None]
  - ASTHENIA [None]
  - BLOOD GLUCOSE INCREASED [None]
  - CATARACT [None]
  - CONVERSION DISORDER [None]
  - DRUG INEFFECTIVE [None]
  - EATING DISORDER [None]
  - EYE SWELLING [None]
  - FATIGUE [None]
  - GLYCOSYLATED HAEMOGLOBIN INCREASED [None]
  - HYPOGLYCAEMIA [None]
  - MAJOR DEPRESSION [None]
  - NERVOUSNESS [None]
  - RETINAL HAEMORRHAGE [None]
  - SWELLING [None]
